FAERS Safety Report 7384111-7 (Version None)
Quarter: 2011Q1

REPORT INFORMATION
  Report Type: 
  Country: None (occurrence: None)
  Receive Date: 20110330
  Receipt Date: 20110321
  Transmission Date: 20110831
  Serious: Yes (Life-Threatening, Hospitalization, Disabling, Congenital Anomaly)
  Sender: FDA-Public Use
  Company Number: A0911984A

PATIENT
  Sex: Female

DRUGS (2)
  1. LAMICTAL [Suspect]
     Indication: EPILEPSY
     Dosage: 500MG PER DAY
     Route: 064
  2. KEPPRA [Concomitant]
     Dosage: 3000MG PER DAY
     Route: 064

REACTIONS (9)
  - SYNDACTYLY [None]
  - PREMATURE BABY [None]
  - HEART DISEASE CONGENITAL [None]
  - GASTROINTESTINAL DISORDER CONGENITAL [None]
  - CLEFT PALATE [None]
  - PREMATURE LABOUR [None]
  - KIDNEY MALFORMATION [None]
  - CONGENITAL SKIN DISORDER [None]
  - DRUG EXPOSURE DURING PREGNANCY [None]
